FAERS Safety Report 7990227-4 (Version None)
Quarter: 2011Q4

REPORT INFORMATION
  Report Type: 
  Country: None (occurrence: None)
  Receive Date: 20111219
  Receipt Date: 20111216
  Transmission Date: 20120403
  Serious: Yes (Hospitalization, Other)
  Sender: FDA-Public Use
  Company Number: CZ-ABBOTT-11P-217-0857869-00

PATIENT
  Sex: Male
  Weight: 79 kg

DRUGS (8)
  1. HUMIRA [Suspect]
     Dates: start: 20110926
  2. MOXONIDIN [Concomitant]
     Indication: PRODUCT USED FOR UNKNOWN INDICATION
  3. BETAXOLOL [Concomitant]
     Indication: PRODUCT USED FOR UNKNOWN INDICATION
  4. SERENOAE EXTRACTUM [Concomitant]
     Indication: PRODUCT USED FOR UNKNOWN INDICATION
  5. TRIBENOSIDE [Concomitant]
     Indication: PRODUCT USED FOR UNKNOWN INDICATION
     Dosage: 2 IN 1 DAY, IRREGULARLY
  6. OMEPRAZOLE [Concomitant]
     Indication: PRODUCT USED FOR UNKNOWN INDICATION
  7. NIMESULID [Concomitant]
     Indication: PRODUCT USED FOR UNKNOWN INDICATION
     Dosage: 2 IN 1 DAYS, PRN
  8. HUMIRA [Suspect]
     Indication: ANKYLOSING SPONDYLITIS
     Route: 058
     Dates: start: 20100823, end: 20110130

REACTIONS (2)
  - DEVICE FAILURE [None]
  - HIP SURGERY [None]
